FAERS Safety Report 7621671-2 (Version None)
Quarter: 2011Q3

REPORT INFORMATION
  Report Type: 
  Country: None (occurrence: None)
  Receive Date: 20110719
  Receipt Date: 20110707
  Transmission Date: 20111222
  Serious: Yes (Death)
  Sender: FDA-Public Use
  Company Number: SK-GENENTECH-321204

PATIENT
  Sex: Female

DRUGS (8)
  1. TRIMETAZIDINE [Concomitant]
     Indication: PRODUCT USED FOR UNKNOWN INDICATION
  2. CAVINTON [Concomitant]
     Indication: PRODUCT USED FOR UNKNOWN INDICATION
  3. ANOPYRIN [Concomitant]
     Indication: PRODUCT USED FOR UNKNOWN INDICATION
  4. OLICARD [Concomitant]
     Indication: PRODUCT USED FOR UNKNOWN INDICATION
  5. FURON [Concomitant]
     Indication: PRODUCT USED FOR UNKNOWN INDICATION
  6. DIGOXIN [Concomitant]
     Indication: PRODUCT USED FOR UNKNOWN INDICATION
  7. CORVATON [Concomitant]
     Indication: PRODUCT USED FOR UNKNOWN INDICATION
  8. RANIBIZUMAB [Suspect]
     Indication: AGE-RELATED MACULAR DEGENERATION
     Dosage: 50 A?L, UNKNOWN
     Route: 031
     Dates: start: 20090914, end: 20100125

REACTIONS (1)
  - DEATH [None]
